FAERS Safety Report 4319709-3 (Version None)
Quarter: 2004Q1

REPORT INFORMATION
  Report Type: 
  Country: None (occurrence: None)
  Receive Date: 20040316
  Receipt Date: 20040301
  Transmission Date: 20041129
  Serious: Yes (Hospitalization)
  Sender: FDA-Public Use
  Company Number: M04-341-054

PATIENT
  Sex: Male

DRUGS (4)
  1. VELCADE [Suspect]
     Indication: LYMPHOMA
  2. CYCLOPHOSPHAMIDE [Concomitant]
  3. DEXAMETHASONE [Concomitant]
  4. RITUXIMAB [Concomitant]

REACTIONS (6)
  - CEREBROVASCULAR ACCIDENT [None]
  - DISSEMINATED INTRAVASCULAR COAGULATION [None]
  - PULMONARY EMBOLISM [None]
  - SPLENIC INFARCTION [None]
  - TUMOUR LYSIS SYNDROME [None]
  - WALDENSTROM'S MACROGLOBULINAEMIA [None]
